FAERS Safety Report 5826866-6 (Version None)
Quarter: 2008Q3

REPORT INFORMATION
  Report Type: 
  Country: None (occurrence: None)
  Receive Date: 20080730
  Receipt Date: 20080723
  Transmission Date: 20090109
  Serious: Yes (Disabling)
  Sender: FDA-Public Use
  Company Number: BR-AVENTIS-200813132GDDC

PATIENT
  Age: 9 Year
  Sex: Female
  Weight: 26 kg

DRUGS (7)
  1. LANTUS [Suspect]
     Indication: TYPE 1 DIABETES MELLITUS
     Route: 058
     Dates: start: 20070801
  2. LANTUS [Suspect]
     Route: 058
     Dates: start: 20080320
  3. LANTUS [Suspect]
     Route: 058
  4. LANTUS [Suspect]
     Route: 058
     Dates: start: 20080421, end: 20080421
  5. LANTUS [Suspect]
     Dosage: DOSE: UNK
     Route: 058
  6. LANTUS [Suspect]
     Dosage: DOSE: UNK
     Route: 058
  7. INSULIN LISPRO [Concomitant]
     Indication: DIABETES MELLITUS
     Route: 058
     Dates: start: 20020101

REACTIONS (8)
  - ARTHRALGIA [None]
  - BLOOD GLUCOSE FLUCTUATION [None]
  - DIABETES MELLITUS INADEQUATE CONTROL [None]
  - DYSGRAPHIA [None]
  - EMOTIONAL DISORDER [None]
  - LIGAMENT CALCIFICATION [None]
  - PAIN [None]
  - PHARMACEUTICAL PRODUCT COMPLAINT [None]
